FAERS Safety Report 7178252-7 (Version None)
Quarter: 2010Q4

REPORT INFORMATION
  Report Type: 
  Country: None (occurrence: None)
  Receive Date: 20101220
  Receipt Date: 20101208
  Transmission Date: 20110411
  Serious: Yes (Other)
  Sender: FDA-Public Use
  Company Number: US-ROCHE-727326

PATIENT
  Sex: Female
  Weight: 54.4 kg

DRUGS (3)
  1. ACCUTANE [Suspect]
     Route: 065
     Dates: start: 19820101
  2. ACCUTANE [Suspect]
     Route: 065
     Dates: start: 19820601, end: 19850101
  3. MIDOL EXTENDED RELIEF CAPLETS [Concomitant]

REACTIONS (12)
  - ANAL FISTULA [None]
  - COLITIS ULCERATIVE [None]
  - CROHN'S DISEASE [None]
  - EMOTIONAL DISTRESS [None]
  - GASTROINTESTINAL INJURY [None]
  - HAEMORRHOIDS [None]
  - INFLAMMATORY BOWEL DISEASE [None]
  - IRRITABLE BOWEL SYNDROME [None]
  - ORAL HERPES [None]
  - OSTEOPENIA [None]
  - PEPTIC ULCER [None]
  - PERIRECTAL ABSCESS [None]
